FAERS Safety Report 11385925 (Version 3)
Quarter: 2015Q4

REPORT INFORMATION
  Report Type: Report from Study
  Country: CA (occurrence: CA)
  Receive Date: 20150817
  Receipt Date: 20151124
  Transmission Date: 20160304
  Serious: Yes (Hospitalization, Other)
  Sender: FDA-Public Use
  Company Number: CA-AMGEN-CANSL2015082165

PATIENT
  Age: 2 Month
  Sex: Male
  Weight: 2.27 kg

DRUGS (5)
  1. ENBREL [Suspect]
     Active Substance: ETANERCEPT
     Indication: EXPOSURE DURING PREGNANCY
     Dosage: 50 MG, 2 TIMES/WK
     Route: 064
     Dates: start: 2011
  2. PLAQUENIL [Concomitant]
     Active Substance: HYDROXYCHLOROQUINE SULFATE
     Indication: PSORIATIC ARTHROPATHY
     Dosage: 20 MG, UNK
     Route: 064
     Dates: start: 2002
  3. CYCLOSPORINE. [Concomitant]
     Active Substance: CYCLOSPORINE
     Indication: PSORIATIC ARTHROPATHY
     Dosage: UNK
     Dates: end: 2014
  4. VITAMIN C [Concomitant]
     Active Substance: ASCORBIC ACID
     Dosage: 50 MG, UNK
     Route: 064
     Dates: start: 2005
  5. FOLATE [Concomitant]
     Active Substance: FOLATE SODIUM
     Indication: PSORIATIC ARTHROPATHY
     Dosage: 5 MG, UNK
     Route: 064

REACTIONS (3)
  - Premature delivery [Unknown]
  - Resuscitation [Unknown]
  - Intensive care [Recovered/Resolved]

NARRATIVE: CASE EVENT DATE: 201505
